FAERS Safety Report 9291146 (Version 1)
Quarter: 2013Q2

REPORT INFORMATION
  Report Type: Spontaneous
  Country: GB (occurrence: GB)
  Receive Date: 20130515
  Receipt Date: 20130515
  Transmission Date: 20140414
  Serious: Yes (Other)
  Sender: FDA-Public Use
  Company Number: GB-UCBSA-085307

PATIENT
  Sex: Male

DRUGS (6)
  1. KEPPRA [Suspect]
     Indication: EPILEPSY
     Dosage: VIA PEG TUBE
  2. KEPPRA [Suspect]
     Indication: EPILEPSY
     Dosage: UNKNOWN
     Route: 042
  3. CLOBAZAM [Concomitant]
     Dosage: VIA SYRINGE DRIVER
  4. LAMOTRIGINE [Concomitant]
     Dosage: VIA SYRINGE DRIVER
  5. MIDAZOLAM [Concomitant]
     Dosage: VIA SYRINGE DRIVER
  6. PHENOBARBITONE [Concomitant]

REACTIONS (4)
  - Status epilepticus [Unknown]
  - Renal impairment [Recovering/Resolving]
  - Drug dose omission [Unknown]
  - Overdose [Unknown]
